FAERS Safety Report 9524407 (Version 1)
Quarter: 2013Q3

REPORT INFORMATION
  Report Type: Spontaneous
  Country: SE (occurrence: None)
  Receive Date: 20130912
  Receipt Date: 20130912
  Transmission Date: 20140515
  Serious: Yes (Hospitalization)
  Sender: FDA-Public Use
  Company Number: AUR-APL-2013-07558

PATIENT
  Age: 59 Year
  Sex: Male

DRUGS (16)
  1. CLOPIDOGREL (CLOPIDOGREL) [Suspect]
     Indication: PRODUCT USED FOR UNKNOWN INDICATION
  2. BRILIQUE [Suspect]
     Indication: PRODUCT USED FOR UNKNOWN INDICATION
     Dosage: (90 MG, 1 IN 1 D)
     Dates: start: 20120207, end: 20120404
  3. TROMBYL (ACETYLSALICYLIC ACID) [Suspect]
     Indication: PRODUCT USED FOR UNKNOWN INDICATION
     Dosage: 75 MG (75 MG, 1 IN 1 D)
     Dates: start: 20120208
  4. METFORMIN (METFORMIN) [Concomitant]
  5. OMEPRAZOL (OMEPRAZOLE) [Concomitant]
  6. DAONIL (GLIBENCLAMIDE) [Concomitant]
  7. VICTOZA (LIRAGLUTIDE) [Concomitant]
  8. PLAVIX (CLOPIDOGREL BISULFATE) [Concomitant]
  9. DUROFERON (FERROUS SULFATE) [Concomitant]
  10. FOLACIN (FOLIC ACID) [Concomitant]
  11. MECOBALAMIN (MECOBALAMIN) [Concomitant]
  12. RAMIPRIL (RAMIPRIL) [Concomitant]
  13. SIMVASTATIN (SIMVASTATIN) [Concomitant]
  14. NITROGLYCERIN (GLYCERYL TRINITRATE) [Concomitant]
  15. NOVOMIX (NOVOMIX) [Concomitant]
  16. GLIMEPIRIDE (GLIMEPIRIDE) [Concomitant]

REACTIONS (5)
  - Rectal haemorrhage [None]
  - Non-cardiac chest pain [None]
  - Haematochezia [None]
  - Dizziness [None]
  - Diverticulitis intestinal haemorrhagic [None]
